FAERS Safety Report 10681915 (Version 1)
Quarter: 2014Q4

REPORT INFORMATION
  Report Type: Spontaneous
  Country: DE (occurrence: None)
  Receive Date: 20141224
  Receipt Date: 20141224
  Transmission Date: 20150529
  Serious: Yes (Other)
  Sender: FDA-Public Use
  Company Number: FK201406390

PATIENT
  Sex: Female

DRUGS (3)
  1. CLINDAMYCIN [Suspect]
     Active Substance: CLINDAMYCIN\CLINDAMYCIN PHOSPHATE
     Indication: MALARIA
     Dosage: UNKNOWN, ORAL
     Route: 048
  2. ARTESUNATE [Suspect]
     Active Substance: ARTESUNATE
     Indication: MALARIA
     Dosage: 200 MG, RECTAL  5 DOSES
  3. QUININE DIHYDROCHLORIDE [Suspect]
     Active Substance: QUININE HYDROCHLORIDE
     Indication: MALARIA
     Dosage: 20 MG/KG , INTRAVENOUS DRIP OVER 4 HOURS
     Route: 041

REACTIONS (3)
  - Acute kidney injury [None]
  - Electrocardiogram QT prolonged [None]
  - Haemolysis [None]
